FAERS Safety Report 4600305-5 (Version None)
Quarter: 2005Q1

REPORT INFORMATION
  Report Type: 
  Country: None (occurrence: None)
  Receive Date: 20050127
  Receipt Date: 20041030
  Transmission Date: 20050727
  Serious: No
  Sender: FDA-Public Use
  Company Number: USA041183152

PATIENT
  Age: 27 Year
  Sex: Female

DRUGS (1)
  1. STRATTERA [Suspect]
     Dosage: 40 MG
     Dates: start: 20040601, end: 20040701

REACTIONS (3)
  - FATIGUE [None]
  - HYPOTONIA [None]
  - SEDATION [None]
